FAERS Safety Report 25032371 (Version 1)
Quarter: 2025Q1

REPORT INFORMATION
  Report Type: Spontaneous
  Country: US (occurrence: None)
  Receive Date: 20250303
  Receipt Date: 20250303
  Transmission Date: 20250409
  Serious: Yes (Death)
  Sender: FDA-CTU
  Company Number: None

PATIENT
  Sex: Female

DRUGS (10)
  1. POMALYST [Suspect]
     Active Substance: POMALIDOMIDE
     Indication: Plasma cell myeloma
     Dosage: FREQUENCY : DAILY;?
     Route: 048
     Dates: start: 20250201
  2. CALCIUM CITR TAB 200MG [Concomitant]
  3. CARDIZEM CD CAP 240MG/24 [Concomitant]
  4. D2000 ULTRA STRENGTH [Concomitant]
  5. NEXIUM CAP 20MG [Concomitant]
  6. PERCOCET TAB 5-325MG [Concomitant]
  7. SIMVASTATIN [Concomitant]
     Active Substance: SIMVASTATIN
  8. THEOPHYLLINE TAB 300MG ER [Concomitant]
  9. VITAMIN D [Concomitant]
     Active Substance: VITAMIN D NOS
  10. ZINC TAB 50MG [Concomitant]

REACTIONS (1)
  - Death [None]
